FAERS Safety Report 6660796-5 (Version None)
Quarter: 2010Q1

REPORT INFORMATION
  Report Type: 
  Country: None (occurrence: None)
  Receive Date: 20100331
  Receipt Date: 20100319
  Transmission Date: 20100710
  Serious: Yes (Death, Other)
  Sender: FDA-Public Use
  Company Number: US-ROCHE-670722

PATIENT
  Sex: Male
  Weight: 92.5 kg

DRUGS (10)
  1. PEGASYS [Suspect]
     Indication: HEPATITIS C
     Dosage: FORM: PRE-FILLED SYRINGE.
     Route: 058
     Dates: start: 20090927
  2. RIBAVIRIN [Suspect]
     Indication: HEPATITIS C
     Dosage: DIVIDED DOSES.
     Route: 048
     Dates: start: 20090927
  3. ALINIA [Suspect]
     Indication: HEPATITIS C
     Route: 048
     Dates: start: 20090927
  4. LACTULOSE [Concomitant]
     Indication: ENCEPHALOPATHY
     Route: 048
  5. DURAGESIC-100 [Concomitant]
     Indication: PAIN
     Dosage: ROUTE REPORTED AS PATCH
     Route: 050
  6. TOPROL-XL [Concomitant]
     Indication: HYPERTENSION
     Route: 048
  7. ENALAPRIL MALEATE [Concomitant]
  8. ALDACTONE [Concomitant]
     Route: 048
  9. OXYCODONE [Concomitant]
     Indication: PAIN
     Dosage: FREQUENCY: Q 12
     Route: 048
  10. LASIX [Concomitant]

REACTIONS (13)
  - ASCITES [None]
  - BLOOD ALBUMIN DECREASED [None]
  - DEATH [None]
  - DIZZINESS [None]
  - FLUID RETENTION [None]
  - IMMOBILE [None]
  - JOINT LOCK [None]
  - JOINT SWELLING [None]
  - NAUSEA [None]
  - OEDEMA PERIPHERAL [None]
  - PAIN [None]
  - PLATELET COUNT DECREASED [None]
  - VOMITING [None]
